FAERS Safety Report 15164991 (Version 1)
Quarter: 2018Q3

REPORT INFORMATION
  Report Type: Spontaneous
  Country: US (occurrence: US)
  Receive Date: 20180621
  Receipt Date: 20180621
  Transmission Date: 20181010
  Serious: Yes (Disabling)
  Sender: FDA-Public Use
  Company Number: None

PATIENT
  Age: 24 Year
  Sex: Female
  Weight: 68.04 kg

DRUGS (1)
  1. PARAGARD T 380A [Suspect]
     Active Substance: COPPER
     Dates: start: 20180530, end: 20180621

REACTIONS (19)
  - Metal poisoning [None]
  - Depression [None]
  - Fatigue [None]
  - Educational problem [None]
  - Disorientation [None]
  - Weight increased [None]
  - Blood copper increased [None]
  - Panic attack [None]
  - Impaired work ability [None]
  - Anxiety [None]
  - Urinary tract infection [None]
  - Feeling abnormal [None]
  - Loss of personal independence in daily activities [None]
  - Confusional state [None]
  - Psychiatric symptom [None]
  - Mental disorder [None]
  - Chronic disease [None]
  - Emotional disorder [None]
  - Suicidal ideation [None]

NARRATIVE: CASE EVENT DATE: 20180619
